FAERS Safety Report 8924889 (Version 1)
Quarter: 2012Q4

REPORT INFORMATION
  Report Type: 
  Country: NO (occurrence: NO)
  Receive Date: 20121126
  Receipt Date: 20121126
  Transmission Date: 20130627
  Serious: Yes (Other)
  Sender: FDA-Public Use
  Company Number: NO-PFIZER INC-2012294572

PATIENT
  Age: 25 Year
  Sex: Male

DRUGS (3)
  1. LYRICA [Suspect]
     Indication: ANXIETY
     Dosage: 1200 mg a day
     Route: 048
     Dates: start: 2012
  2. SUBOXONE [Concomitant]
     Indication: DRUG DEPENDENCE OF MORPHINE TYPE
     Dosage: 16 mg, 1x/day
     Route: 060
     Dates: start: 20121021
  3. TOLVON [Concomitant]
     Indication: SLEEP DIFFICULT
     Dosage: 60 mg, 1x/day
     Route: 048

REACTIONS (1)
  - Drug abuse [Recovering/Resolving]
